FAERS Safety Report 5566266-X (Version None)
Quarter: 2007Q4

REPORT INFORMATION
  Report Type: 
  Country: None (occurrence: None)
  Receive Date: 20071219
  Receipt Date: 20071218
  Transmission Date: 20080405
  Serious: Yes (Other)
  Sender: FDA-Public Use
  Company Number: DE-BRISTOL-MYERS SQUIBB COMPANY-13958855

PATIENT
  Age: 54 Year
  Sex: Female
  Weight: 58 kg

DRUGS (2)
  1. TAXOL [Suspect]
     Indication: OVARIAN CANCER
     Dosage: ALSO GIVEN ON 09-NOV-2007 AND 07-DEC-2007.
     Dates: start: 20071019
  2. CARBOPLATIN [Suspect]
     Indication: OVARIAN CANCER
     Dosage: ALSO GIVEN ON 09-NOV-2007 AND 07-DEC-2007.
     Dates: start: 20071019

REACTIONS (4)
  - ARTHRALGIA [None]
  - HEADACHE [None]
  - MYALGIA [None]
  - NEUROPATHY [None]
